FAERS Safety Report 7824905-4 (Version None)
Quarter: 2011Q4

REPORT INFORMATION
  Report Type: 
  Country: None (occurrence: None)
  Receive Date: 20111019
  Receipt Date: 20110404
  Transmission Date: 20120403
  Serious: No
  Sender: FDA-Public Use
  Company Number: US-BRISTOL-MYERS SQUIBB COMPANY-15559222

PATIENT
  Age: 68 Year
  Sex: Female

DRUGS (2)
  1. ZETIA [Concomitant]
  2. AVALIDE [Suspect]

REACTIONS (3)
  - HYPERTENSION [None]
  - DIZZINESS [None]
  - HEADACHE [None]
